FAERS Safety Report 7655120-5 (Version None)
Quarter: 2011Q3

REPORT INFORMATION
  Report Type: 
  Country: None (occurrence: None)
  Receive Date: 20110804
  Receipt Date: 20110722
  Transmission Date: 20111222
  Serious: Yes (Hospitalization)
  Sender: FDA-Public Use
  Company Number: SI-JNJFOC-20110700337

PATIENT
  Age: 72 Year
  Sex: Male

DRUGS (3)
  1. TRAMADOL HYDROCHLORIDE [Suspect]
     Indication: PRODUCT USED FOR UNKNOWN INDICATION
     Route: 065
     Dates: end: 20110620
  2. MORPHINE SULFATE [Concomitant]
  3. BENZODIAZEPINE DERIVATIVES [Concomitant]
     Dates: start: 20110620

REACTIONS (6)
  - SUICIDE ATTEMPT [None]
  - INTENTIONAL OVERDOSE [None]
  - HYPOTENSION [None]
  - MIOSIS [None]
  - LOSS OF CONSCIOUSNESS [None]
  - HYPOTONIA [None]
